FAERS Safety Report 10654158 (Version 1)
Quarter: 2014Q4

REPORT INFORMATION
  Report Type: Spontaneous
  Country: US (occurrence: US)
  Receive Date: 20141216
  Receipt Date: 20141216
  Transmission Date: 20150529
  Serious: Yes (Other)
  Sender: FDA-Public Use
  Company Number: US-ELI_LILLY_AND_COMPANY-US201412001554

PATIENT
  Sex: Female

DRUGS (1)
  1. CYMBALTA [Suspect]
     Active Substance: DULOXETINE HYDROCHLORIDE
     Indication: DEPRESSION
     Dosage: UNK, UNKNOWN
     Route: 065
     Dates: start: 2009, end: 201212

REACTIONS (10)
  - Agitation [Unknown]
  - Suicidal ideation [Unknown]
  - Dizziness [Unknown]
  - Irritability [Unknown]
  - Mood swings [Unknown]
  - Vertigo [Unknown]
  - Drug withdrawal syndrome [Unknown]
  - Nightmare [Unknown]
  - Sleep disorder [Unknown]
  - Nausea [Unknown]

NARRATIVE: CASE EVENT DATE: 20121202
